FAERS Safety Report 11930297 (Version 1)
Quarter: 2016Q1

REPORT INFORMATION
  Report Type: Spontaneous
  Country: US (occurrence: None)
  Receive Date: 20160119
  Receipt Date: 20160119
  Transmission Date: 20160526
  Serious: Yes (Disabling, Other)
  Sender: FDA-Public Use
  Company Number: None

PATIENT
  Age: 55 Year
  Sex: Female
  Weight: 68.04 kg

DRUGS (2)
  1. PANTOPRAZOLE [Suspect]
     Active Substance: PANTOPRAZOLE SODIUM
     Indication: OESOPHAGEAL DISORDER
     Dosage: 1 PILL
     Route: 048
  2. PANTOPRAZOLE [Suspect]
     Active Substance: PANTOPRAZOLE SODIUM
     Indication: INFLAMMATION
     Dosage: 1 PILL
     Route: 048

REACTIONS (6)
  - Abdominal pain [None]
  - Palpitations [None]
  - Abdominal distension [None]
  - Gastrooesophageal reflux disease [None]
  - Eructation [None]
  - Diarrhoea [None]

NARRATIVE: CASE EVENT DATE: 20151212
